FAERS Safety Report 21622874 (Version 1)
Quarter: 2022Q4

REPORT INFORMATION
  Report Type: Report from Study
  Country: US (occurrence: US)
  Receive Date: 20221121
  Receipt Date: 20221121
  Transmission Date: 20230113
  Serious: Yes (Death)
  Sender: FDA-Public Use
  Company Number: US-DSJP-DSU-2022-128680

PATIENT
  Sex: Female

DRUGS (2)
  1. ENHERTU [Suspect]
     Active Substance: FAM-TRASTUZUMAB DERUXTECAN-NXKI
     Indication: Gastric cancer
     Dosage: 457.8 UNK
     Route: 042
     Dates: start: 20220414
  2. ENHERTU [Suspect]
     Active Substance: FAM-TRASTUZUMAB DERUXTECAN-NXKI
     Dosage: 467.8 MG, ONCE EVERY 3 WK
     Route: 042
     Dates: start: 20220419

REACTIONS (3)
  - Death [Fatal]
  - Weight decreased [Unknown]
  - Hospice care [Unknown]

NARRATIVE: CASE EVENT DATE: 20220101
